FAERS Safety Report 5991764-4 (Version None)
Quarter: 2008Q4

REPORT INFORMATION
  Report Type: 
  Country: None (occurrence: None)
  Receive Date: 20081211
  Receipt Date: 20081203
  Transmission Date: 20090506
  Serious: Yes (Hospitalization)
  Sender: FDA-Public Use
  Company Number: JP-ABBOTT-08P-087-0491142-00

PATIENT
  Age: 62 Year
  Sex: Female

DRUGS (12)
  1. LOPINAVIR AND RITONAVIR [Suspect]
     Indication: HIV INFECTION
     Dosage: NOT REPORTED
     Dates: start: 20070601, end: 20080101
  2. STAVUDINE [Concomitant]
     Indication: HIV INFECTION
     Dosage: NOT REPORTED
     Dates: start: 20070601, end: 20070901
  3. LAMIVUDINE [Concomitant]
     Indication: HIV INFECTION
     Dosage: NOT REPORTED
     Dates: start: 20070601
  4. LAMIVUDINE [Concomitant]
     Dosage: NOT REPORTED
     Dates: start: 20070101
  5. ABACAVIR [Concomitant]
     Indication: HIV INFECTION
     Dosage: NOT REPORTED
     Dates: start: 20070901
  6. ABACAVIR [Concomitant]
     Dates: start: 20070101
  7. DARUNAVIR [Concomitant]
     Indication: HIV INFECTION
     Dosage: NOT REPORTED
     Dates: start: 20070101
  8. RITONAVIR [Concomitant]
     Indication: HIV INFECTION
     Dosage: NOT REPORTED
     Dates: start: 20070101
  9. BISPHOSPHONATES [Concomitant]
     Indication: OSTEOPOROSIS
     Dosage: NOT REPORTED
     Dates: start: 20080201
  10. BISPHOSPHONATES [Concomitant]
     Indication: COMPRESSION FRACTURE
  11. NSAIDS [Concomitant]
     Indication: OSTEOPOROSIS
     Dosage: NOT REPORTED
     Dates: start: 20080201
  12. NSAIDS [Concomitant]
     Indication: COMPRESSION FRACTURE

REACTIONS (2)
  - DUODENAL ULCER [None]
  - GASTRIC ULCER [None]
